FAERS Safety Report 9356873 (Version 4)
Quarter: 2017Q4

REPORT INFORMATION
  Report Type: Report from Study
  Country: BR (occurrence: BR)
  Receive Date: 20130620
  Receipt Date: 20171005
  Transmission Date: 20180321
  Serious: Yes (Other)
  Sender: FDA-Public Use
  Company Number: BR-AMGEN-BRACT2011047557

PATIENT
  Age: 65 Year
  Sex: Female
  Weight: 64 kg

DRUGS (20)
  1. ENALAPRIL [Concomitant]
     Active Substance: ENALAPRIL
     Dosage: 10 MG, 1X/DAY
     Route: 048
     Dates: start: 2006
  2. FAMOTIDINE. [Concomitant]
     Active Substance: FAMOTIDINE
     Dosage: 40 MG, UNK
  3. ERGOCALCIFEROL. [Concomitant]
     Active Substance: ERGOCALCIFEROL
     Dosage: 600 MG, 1X/DAY
     Dates: start: 2004
  4. PARACETAMOL [Concomitant]
     Active Substance: ACETAMINOPHEN
     Dosage: 100 MG, UNK
  5. PURAN [Concomitant]
     Active Substance: LEVOTHYROXINE SODIUM
     Dosage: 50 MG, 1X/DAY
     Route: 048
     Dates: start: 2007
  6. PIROXICAM. [Concomitant]
     Active Substance: PIROXICAM
     Dosage: 10 MG, 1X/DAY
     Route: 048
  7. ENBREL [Suspect]
     Active Substance: ETANERCEPT
     Dosage: UNK
     Route: 065
  8. TRIAMCINOLONE [Concomitant]
     Active Substance: TRIAMCINOLONE
     Dosage: 1.5 MG, UNK
  9. ENBREL [Suspect]
     Active Substance: ETANERCEPT
     Dosage: UNK
     Route: 065
  10. METHOTREXATE. [Concomitant]
     Active Substance: METHOTREXATE
     Dosage: UNK
  11. HYDROCHLOROTHIAZIDE. [Concomitant]
     Active Substance: HYDROCHLOROTHIAZIDE
     Dosage: 55 MG, UNK
  12. ENBREL [Suspect]
     Active Substance: ETANERCEPT
     Indication: RHEUMATOID ARTHRITIS
     Dosage: 25 MG, 1X/WEEK
     Route: 058
     Dates: start: 2010
  13. CALCIUM [Concomitant]
     Active Substance: CALCIUM
     Dosage: 600 MG, 1X/DAY
     Dates: start: 2004
  14. MINERALS NOS [Concomitant]
     Active Substance: MINERALS
     Dosage: 600 MG, 1X/DAY
     Dates: start: 2004
  15. OSSOTRAT-D [Concomitant]
     Dosage: 600 MG, 1X/DAY
     Dates: start: 2004
  16. DIOSMIN [Concomitant]
     Active Substance: DIOSMIN
     Dosage: UNK
  17. ENBREL [Suspect]
     Active Substance: ETANERCEPT
     Dosage: 50 MG, 1X/WEEK
     Route: 065
     Dates: start: 201303
  18. NIMESULIDE [Concomitant]
     Active Substance: NIMESULIDE
     Dosage: 100 MG, UNK
  19. SOMALGIN [Concomitant]
     Active Substance: ASPIRIN\DIHYDROXYALUMINUM AMINOACETATE ANHYDROUS\MAGNESIUM CARBONATE
     Dosage: 100 MG, 1X/DAY
     Dates: start: 1996
  20. ENBREL [Suspect]
     Active Substance: ETANERCEPT
     Dosage: UNK
     Route: 065

REACTIONS (16)
  - Injection site induration [Unknown]
  - Product use issue [Unknown]
  - Nail bed bleeding [Unknown]
  - Pain [Unknown]
  - Finger deformity [Unknown]
  - Injection site discolouration [Unknown]
  - Drug ineffective [Unknown]
  - Blood glucose increased [Recovered/Resolved]
  - Neuropathy peripheral [Unknown]
  - Diabetes mellitus [Unknown]
  - Hypoaesthesia [Unknown]
  - Femur fracture [Recovered/Resolved]
  - Poor quality drug administered [Unknown]
  - Product storage error [Unknown]
  - Urinary tract infection [Recovered/Resolved]
  - Pain in extremity [Unknown]

NARRATIVE: CASE EVENT DATE: 2010
